FAERS Safety Report 9040307 (Version 1)
Quarter: 2013Q1

REPORT INFORMATION
  Report Type: Report from Study
  Country: US (occurrence: US)
  Receive Date: 20130129
  Receipt Date: 20130129
  Transmission Date: 20140127
  Serious: No
  Sender: FDA-Public Use
  Company Number: US-ABBOTT-12P-163-0889228-00

PATIENT
  Sex: Male
  Weight: 86.26 kg

DRUGS (3)
  1. HUMIRA 40 MG/0.8 ML PEN [Suspect]
     Indication: ANKYLOSING SPONDYLITIS
     Route: 058
     Dates: start: 2008
  2. ASACOL [Concomitant]
     Indication: COLITIS
     Dates: start: 2003
  3. ASACOL [Concomitant]
     Indication: GASTRIC HAEMORRHAGE

REACTIONS (2)
  - Injection site pain [Not Recovered/Not Resolved]
  - Drug administered at inappropriate site [Recovered/Resolved]
